FAERS Safety Report 16829525 (Version 1)
Quarter: 2019Q3

REPORT INFORMATION
  Report Type: Spontaneous
  Country: TR (occurrence: TR)
  Receive Date: 20190919
  Receipt Date: 20190919
  Transmission Date: 20191005
  Serious: Yes (Hospitalization)
  Sender: FDA-Public Use
  Company Number: TR-ENDO PHARMACEUTICALS INC-2019-108036

PATIENT
  Age: 40 Year
  Sex: Male

DRUGS (1)
  1. DISULFIRAM. [Suspect]
     Active Substance: DISULFIRAM
     Indication: ALCOHOLISM
     Dosage: UNK UNKNOWN, UNKNOWN
     Route: 065
     Dates: start: 2017

REACTIONS (3)
  - Wernicke^s encephalopathy [Recovered/Resolved]
  - Acute motor-sensory axonal neuropathy [Recovered/Resolved]
  - Neurotoxicity [Recovered/Resolved]
